FAERS Safety Report 19809356 (Version 2)
Quarter: 2022Q1

REPORT INFORMATION
  Report Type: Spontaneous
  Country: CA (occurrence: CA)
  Receive Date: 20210908
  Receipt Date: 20220127
  Transmission Date: 20220423
  Serious: Yes (Life-Threatening, Hospitalization, Other)
  Sender: FDA-Public Use
  Company Number: CA-SA-SAC20210907001094

PATIENT
  Age: 52 Year
  Sex: Male
  Weight: 92 kg

DRUGS (2)
  1. DOCETAXEL [Suspect]
     Active Substance: DOCETAXEL
     Indication: Non-small cell lung cancer
     Dosage: 150 MG, Q3W
     Route: 042
     Dates: start: 20200225, end: 20200225
  2. CARBOPLATIN [Suspect]
     Active Substance: CARBOPLATIN
     Indication: Non-small cell lung cancer
     Dosage: 550 MG, Q3W
     Route: 042
     Dates: start: 20200225, end: 20200225

REACTIONS (3)
  - Positive airway pressure therapy [Recovered/Resolved]
  - Intensive care [Recovered/Resolved]
  - Febrile neutropenia [Recovered/Resolved]

NARRATIVE: CASE EVENT DATE: 20200307
